FAERS Safety Report 23329695 (Version 3)
Quarter: 2023Q4

REPORT INFORMATION
  Report Type: Spontaneous
  Country: US (occurrence: US)
  Receive Date: 20231222
  Receipt Date: 20231228
  Transmission Date: 20240110
  Serious: No
  Sender: FDA-Public Use
  Company Number: US-OPELLA-2023OHG019592

PATIENT

DRUGS (1)
  1. ICY HOT VANISHING SCENT [Suspect]
     Active Substance: MENTHOL
     Dosage: DOSAGE STRENGTH:25,5 G; 8,5 G/85 G

REACTIONS (2)
  - Drug ineffective [Unknown]
  - No adverse event [Unknown]
